FAERS Safety Report 24796632 (Version 1)
Quarter: 2025Q1

REPORT INFORMATION
  Report Type: Spontaneous
  Country: US (occurrence: US)
  Receive Date: 20250101
  Receipt Date: 20250101
  Transmission Date: 20250409
  Serious: No
  Sender: DR REDDYS
  Company Number: US-DRL-USA-SPO/USA/24/0019145

PATIENT
  Age: 72 Year
  Sex: Female

DRUGS (1)
  1. LENALIDOMIDE [Suspect]
     Active Substance: LENALIDOMIDE
     Indication: Product used for unknown indication
     Dosage: LENALIDOMIDE CAPSULES 10 MG, 28 COUNT, FOR 28 DAYS STRAIGHT WITHOUT BREAK
     Route: 065
     Dates: start: 20241028, end: 20241121

REACTIONS (1)
  - Circumstance or information capable of leading to medication error [Unknown]
